FAERS Safety Report 7480678-9 (Version None)
Quarter: 2011Q2

REPORT INFORMATION
  Report Type: 
  Country: None (occurrence: None)
  Receive Date: 20110516
  Receipt Date: 20110406
  Transmission Date: 20111010
  Serious: Yes (Other)
  Sender: FDA-Public Use
  Company Number: US-BAYER-2010-002136

PATIENT
  Sex: Female
  Weight: 73 kg

DRUGS (7)
  1. NASONEX [Concomitant]
     Dosage: UNK
     Dates: start: 20091201
  2. VERAPAMIL [Concomitant]
     Dosage: UNK
     Dates: start: 20091101
  3. YAZ [Suspect]
     Indication: CONTRACEPTION
     Dosage: UNK
     Dates: start: 20050101, end: 20090101
  4. ANTIVERT [Concomitant]
     Dosage: UNK
  5. LEVAQUIN [Concomitant]
     Dosage: UNK
     Dates: start: 20081201
  6. VICODIN [Concomitant]
     Dosage: UNK
     Dates: start: 20081201
  7. NSAID'S [Concomitant]

REACTIONS (13)
  - QUALITY OF LIFE DECREASED [None]
  - PAIN [None]
  - THYROID NEOPLASM [None]
  - HYPERTENSION [None]
  - WEIGHT FLUCTUATION [None]
  - HEADACHE [None]
  - VERTIGO [None]
  - CENTRAL NERVOUS SYSTEM LESION [None]
  - DIZZINESS [None]
  - SINUS TACHYCARDIA [None]
  - CHEST PAIN [None]
  - DYSPNOEA [None]
  - MIGRAINE [None]
